FAERS Safety Report 10788467 (Version 1)
Quarter: 2015Q1

REPORT INFORMATION
  Report Type: Spontaneous
  Country: US (occurrence: None)
  Receive Date: 20150211
  Receipt Date: 20150211
  Transmission Date: 20150721
  Serious: Yes (Life-Threatening, Hospitalization)
  Sender: FDA-Public Use
  Company Number: None

PATIENT
  Age: 48 Year
  Sex: Male
  Weight: 132 kg

DRUGS (1)
  1. FENTANYL CITRATE. [Suspect]
     Active Substance: FENTANYL CITRATE
     Indication: PREMEDICATION
     Route: 042
     Dates: start: 20150204, end: 20150204

REACTIONS (5)
  - Haemodynamic instability [None]
  - Respiratory arrest [None]
  - Nausea [None]
  - Loss of consciousness [None]
  - Feeling hot [None]

NARRATIVE: CASE EVENT DATE: 20150204
